FAERS Safety Report 15611028 (Version 1)
Quarter: 2018Q4

REPORT INFORMATION
  Report Type: Spontaneous
  Country: US (occurrence: US)
  Receive Date: 20181113
  Receipt Date: 20181113
  Transmission Date: 20190205
  Serious: No
  Sender: FDA-Public Use
  Company Number: US-ROCHE-2067821

PATIENT
  Age: 6 Year
  Sex: Male

DRUGS (2)
  1. LOTRIMIN CREAM [Concomitant]
     Indication: TINEA INFECTION
     Dosage: DAILY FOR 2 WEEKS
     Route: 065
  2. TAMIFLU [Suspect]
     Active Substance: OSELTAMIVIR PHOSPHATE
     Indication: INFLUENZA
     Route: 065

REACTIONS (1)
  - Tinea infection [Unknown]
